FAERS Safety Report 7320499-0 (Version None)
Quarter: 2011Q1

REPORT INFORMATION
  Report Type: 
  Country: None (occurrence: None)
  Receive Date: 20110228
  Receipt Date: 20110224
  Transmission Date: 20110831
  Serious: Yes (Hospitalization)
  Sender: FDA-Public Use
  Company Number: US-BRISTOL-MYERS SQUIBB COMPANY-15513765

PATIENT
  Age: 82 Year
  Sex: Female

DRUGS (2)
  1. ASA [Suspect]
  2. COUMADIN [Suspect]

REACTIONS (5)
  - PAIN IN EXTREMITY [None]
  - RECTAL HAEMORRHAGE [None]
  - LOWER GASTROINTESTINAL HAEMORRHAGE [None]
  - RENAL FAILURE ACUTE [None]
  - ERYTHEMA [None]
